FAERS Safety Report 19790249 (Version 1)
Quarter: 2021Q3

REPORT INFORMATION
  Report Type: Spontaneous
  Country: US (occurrence: US)
  Receive Date: 20210904
  Receipt Date: 20210904
  Transmission Date: 20211014
  Serious: No
  Sender: FDA-Public Use
  Company Number: US-009507513-2108USA005934

PATIENT
  Age: 69 Year
  Sex: Male

DRUGS (2)
  1. CARVEDILOL. [Concomitant]
     Active Substance: CARVEDILOL
  2. PROVENTIL [Suspect]
     Active Substance: ALBUTEROL
     Indication: COVID-19
     Dosage: UNK
     Dates: start: 202108

REACTIONS (1)
  - Product use in unapproved indication [Unknown]

NARRATIVE: CASE EVENT DATE: 202108
